FAERS Safety Report 12908251 (Version 3)
Quarter: 2022Q4

REPORT INFORMATION
  Report Type: Spontaneous
  Country: JP (occurrence: JP)
  Receive Date: 20161103
  Receipt Date: 20221004
  Transmission Date: 20230113
  Serious: Yes (Hospitalization, Other)
  Sender: FDA-Public Use
  Company Number: JP-PFIZER INC-2016511210

PATIENT
  Age: 77 Year
  Sex: Male

DRUGS (6)
  1. METHYLPREDNISOLONE SODIUM SUCCINATE [Suspect]
     Active Substance: METHYLPREDNISOLONE SODIUM SUCCINATE
     Indication: Eosinophilic pneumonia
     Dosage: 500 MG, 1X/DAY FOR 3 DAYS
     Route: 042
     Dates: start: 20140715, end: 20140717
  2. FUROSEMIDE [Concomitant]
     Active Substance: FUROSEMIDE
     Indication: Fluid imbalance
     Dosage: 240 MG, DAILY
     Route: 042
     Dates: start: 20140715
  3. CARPERITIDE [Concomitant]
     Active Substance: CARPERITIDE
     Indication: Fluid imbalance
     Dosage: UNK
     Route: 042
     Dates: start: 20140712
  4. DARBEPOETIN ALFA [Concomitant]
     Active Substance: DARBEPOETIN ALFA
     Indication: Nephrogenic anaemia
     Dosage: 120 UG
     Route: 058
     Dates: start: 20140715
  5. SULFAMETHOXAZOLE\TRIMETHOPRIM [Concomitant]
     Active Substance: SULFAMETHOXAZOLE\TRIMETHOPRIM
     Indication: Infection prophylaxis
     Dosage: 1 DF
     Route: 048
     Dates: start: 20140715
  6. NIFEDIPINE [Concomitant]
     Active Substance: NIFEDIPINE
     Indication: Hypertension
     Dosage: 80 MG DIVIDED INTO TWICE
     Route: 048

REACTIONS (1)
  - Tumour lysis syndrome [Recovered/Resolved]
